FAERS Safety Report 10658413 (Version 1)
Quarter: 2014Q4

REPORT INFORMATION
  Report Type: Spontaneous
  Country: US (occurrence: US)
  Receive Date: 20141217
  Receipt Date: 20141217
  Transmission Date: 20150529
  Serious: No
  Sender: FDA-Public Use
  Company Number: US-TEVA-525286USA

PATIENT
  Sex: Male

DRUGS (5)
  1. MIRTAZAPINE. [Concomitant]
     Active Substance: MIRTAZAPINE
     Indication: DECREASED APPETITE
  2. AZILECT [Suspect]
     Active Substance: RASAGILINE MESYLATE
     Indication: PARKINSON^S DISEASE
     Dates: start: 20141123
  3. MIRTAZAPINE. [Concomitant]
     Active Substance: MIRTAZAPINE
     Indication: SEDATION
     Dosage: 45 MILLIGRAM DAILY; QHS
     Route: 048
  4. MIRTAZAPINE. [Concomitant]
     Active Substance: MIRTAZAPINE
     Indication: DEPRESSION
  5. LEVODOPA [Concomitant]
     Active Substance: LEVODOPA
     Indication: PARKINSON^S DISEASE

REACTIONS (2)
  - Nausea [Unknown]
  - Feeling abnormal [Unknown]

NARRATIVE: CASE EVENT DATE: 20141123
